FAERS Safety Report 12412851 (Version 1)
Quarter: 2016Q2

REPORT INFORMATION
  Report Type: Spontaneous
  Country: PL (occurrence: PL)
  Receive Date: 20160527
  Receipt Date: 20160527
  Transmission Date: 20160815
  Serious: Yes (Other)
  Sender: FDA-Public Use
  Company Number: PL-PFIZER INC-2016271650

PATIENT
  Age: 71 Year
  Sex: Male

DRUGS (7)
  1. VANCOMYCIN [Suspect]
     Active Substance: VANCOMYCIN
     Indication: ENDOPHTHALMITIS
     Dosage: 1 G, 2X/DAY
     Route: 042
  2. PHENYLEPHRINE [Suspect]
     Active Substance: PHENYLEPHRINE\PHENYLEPHRINE HYDROCHLORIDE
     Indication: ENDOPHTHALMITIS
  3. METHYLPREDNISOLONE. [Suspect]
     Active Substance: METHYLPREDNISOLONE
     Indication: ENDOPHTHALMITIS
  4. TROPICAMIDE. [Suspect]
     Active Substance: TROPICAMIDE
     Indication: ENDOPHTHALMITIS
  5. CEFTRIAXONE SODIUM. [Suspect]
     Active Substance: CEFTRIAXONE SODIUM
     Indication: ENDOPHTHALMITIS
     Dosage: 1 G, 2X/DAY
     Route: 042
  6. MOXIFLOXACIN. [Suspect]
     Active Substance: MOXIFLOXACIN
     Indication: ENDOPHTHALMITIS
  7. DEXAMETHASONE. [Suspect]
     Active Substance: DEXAMETHASONE
     Indication: ENDOPHTHALMITIS

REACTIONS (5)
  - Drug ineffective [Unknown]
  - Eye excision [Unknown]
  - Eye disorder [Unknown]
  - Eye swelling [Unknown]
  - Corneal disorder [Unknown]
